FAERS Safety Report 17557957 (Version 2)
Quarter: 2020Q2

REPORT INFORMATION
  Report Type: Spontaneous
  Country: US (occurrence: US)
  Receive Date: 20200318
  Receipt Date: 20200619
  Transmission Date: 20200713
  Serious: No
  Sender: FDA-Public Use
  Company Number: US-BIOMARINAP-US-2020-128702

PATIENT
  Age: 48 Year
  Sex: Female
  Weight: 59 kg

DRUGS (5)
  1. SENSODYNE [SODIUM FLUORIDE] [Concomitant]
     Indication: HYPERAESTHESIA TEETH
  2. KUVAN [Suspect]
     Active Substance: SAPROPTERIN DIHYDROCHLORIDE
     Indication: PHENYLKETONURIA
     Dosage: 1000 MILLIGRAM, QD
     Route: 048
     Dates: start: 201903
  3. SENSODYNE [SODIUM FLUORIDE] [Concomitant]
     Indication: HYPERAESTHESIA TEETH
  4. PHENYLADE [Concomitant]
     Indication: PRODUCT USED FOR UNKNOWN INDICATION
  5. VITAMINS NOS [Concomitant]
     Active Substance: VITAMINS
     Indication: PRODUCT USED FOR UNKNOWN INDICATION

REACTIONS (1)
  - Dental caries [Recovered/Resolved]
